FAERS Safety Report 6673151-9 (Version None)
Quarter: 2010Q2

REPORT INFORMATION
  Report Type: 
  Country: None (occurrence: None)
  Receive Date: 20100408
  Receipt Date: 20100331
  Transmission Date: 20101027
  Serious: Yes (Other)
  Sender: FDA-Public Use
  Company Number: JP-PFIZER INC-2010035787

PATIENT
  Age: 7 Year
  Sex: Female
  Weight: 23 kg

DRUGS (5)
  1. MEDROL [Suspect]
     Dosage: 1.5 MG/KG, 1X/DAY
     Route: 048
     Dates: start: 20090401
  2. MEDROL [Suspect]
     Dosage: 1.25MG/KG/DAY
  3. SOLU-MEDROL [Suspect]
     Indication: ANTIINFLAMMATORY THERAPY
     Dosage: 30 MG/KG, TWICE
     Route: 042
     Dates: start: 20090409, end: 20090411
  4. SOLU-MEDROL [Suspect]
     Dosage: UNK
     Dates: start: 20090416, end: 20090418
  5. IBUPROFEN [Suspect]
     Indication: PAIN
     Dosage: 30MG/KG
     Dates: start: 20090403

REACTIONS (1)
  - REVERSIBLE POSTERIOR LEUKOENCEPHALOPATHY SYNDROME [None]
